FAERS Safety Report 6009935-X (Version None)
Quarter: 2008Q4

REPORT INFORMATION
  Report Type: 
  Country: None (occurrence: None)
  Receive Date: 20081216
  Receipt Date: 20081205
  Transmission Date: 20090506
  Serious: Yes (Other)
  Sender: FDA-Public Use
  Company Number: WAES 0812USA02619

PATIENT

DRUGS (10)
  1. DECADRON [Suspect]
     Indication: NON-HODGKIN'S LYMPHOMA
     Dosage: 10 MG/M[2]/ PO
     Route: 048
  2. INJ ASPARAGINASE [Suspect]
     Indication: NON-HODGKIN'S LYMPHOMA
     Dosage: 6000 IU-10000 IV
     Route: 042
  3. PREDNISONE [Suspect]
     Indication: NON-HODGKIN'S LYMPHOMA
     Dosage: 60 MG/M [2] / PO
     Route: 048
  4. VINCRISTINE SULFATE [Suspect]
     Indication: NON-HODGKIN'S LYMPHOMA
     Dosage: 1.5 MG/M[2]/ IV
     Route: 042
  5. INFUSION (FORM) DAUNORUBICIN [Suspect]
     Indication: NON-HODGKIN'S LYMPHOMA
     Dosage: 30 MG/M[2]/ IV
     Route: 042
  6. CYCLOPHOSPHAMIDE [Suspect]
     Indication: NON-HODGKIN'S LYMPHOMA
     Dosage: 1000 MG/M[2]/ IV
     Route: 042
  7. MERCAPTOPURINE [Suspect]
     Indication: NON-HODGKIN'S LYMPHOMA
     Dosage: 25 MG/M[2]/ PO; 60 MG/M[2]/ PO
     Route: 048
  8. CYTARABINE [Suspect]
     Indication: NON-HODGKIN'S LYMPHOMA
  9. METHOTREXATE [Suspect]
     Indication: NON-HODGKIN'S LYMPHOMA
     Dosage: 9 GM/
  10. DOXORUBICIN HCL [Suspect]
     Indication: NON-HODGKIN'S LYMPHOMA
     Dosage: 30 MG/M[2]/ IV
     Route: 042

REACTIONS (3)
  - BLOOD DISORDER [None]
  - DRUG TOXICITY [None]
  - PANCREATITIS ACUTE [None]
